FAERS Safety Report 6548582-8 (Version None)
Quarter: 2010Q1

REPORT INFORMATION
  Report Type: 
  Country: None (occurrence: None)
  Receive Date: 20100124
  Receipt Date: 20090908
  Transmission Date: 20100710
  Serious: No
  Sender: FDA-Public Use
  Company Number: US-ALLERGAN-0912463US

PATIENT
  Sex: Male

DRUGS (4)
  1. RESTASIS [Suspect]
     Indication: DRY EYE
     Dosage: UNK
     Route: 047
     Dates: start: 20090901
  2. RANEXA [Concomitant]
     Dosage: UNK
  3. VERAPAMIL [Concomitant]
     Dosage: UNK
  4. MECLIZINE [Concomitant]
     Dosage: UNK

REACTIONS (2)
  - EYE IRRITATION [None]
  - VISION BLURRED [None]
